FAERS Safety Report 6134871-8 (Version None)
Quarter: 2009Q1

REPORT INFORMATION
  Report Type: 
  Country: None (occurrence: None)
  Receive Date: 20090327
  Receipt Date: 20090317
  Transmission Date: 20090719
  Serious: Yes (Other)
  Sender: FDA-Public Use
  Company Number: GB-PFIZER INC-2009185567

PATIENT

DRUGS (2)
  1. EPIRUBICIN HCL [Suspect]
  2. DOXORUBICIN HCL [Interacting]

REACTIONS (4)
  - DRUG INTERACTION [None]
  - NAUSEA [None]
  - PANIC REACTION [None]
  - VOMITING [None]
